FAERS Safety Report 14811383 (Version 2)
Quarter: 2018Q3

REPORT INFORMATION
  Report Type: Report from Study
  Country: US (occurrence: US)
  Receive Date: 20180425
  Receipt Date: 20180720
  Transmission Date: 20181010
  Serious: No
  Sender: FDA-Public Use
  Company Number: US-AMGEN-USASL2018041182

PATIENT
  Age: 74 Year
  Sex: Male
  Weight: 106 kg

DRUGS (1)
  1. REPATHA [Suspect]
     Active Substance: EVOLOCUMAB
     Indication: TYPE V HYPERLIPIDAEMIA
     Dosage: 140 MG, Q2WK
     Route: 058
     Dates: end: 20180222

REACTIONS (4)
  - Depressed mood [Unknown]
  - Muscle spasms [Recovered/Resolved]
  - Arthralgia [Recovered/Resolved]
  - Muscle tightness [Recovered/Resolved]

NARRATIVE: CASE EVENT DATE: 20180222
